FAERS Safety Report 9314178 (Version 1)
Quarter: 2013Q2

REPORT INFORMATION
  Report Type: Report from Study
  Country: GB (occurrence: GB)
  Receive Date: 20130529
  Receipt Date: 20130529
  Transmission Date: 20140414
  Serious: Yes (Hospitalization)
  Sender: FDA-Public Use
  Company Number: GB-ACCORD-015281

PATIENT
  Age: 66 Year
  Sex: Male

DRUGS (12)
  1. GEMCITABINE [Suspect]
     Indication: TRANSITIONAL CELL CARCINOMA
     Dates: start: 20120926, end: 20121128
  2. CISPLATIN [Suspect]
     Indication: PRODUCT USED FOR UNKNOWN INDICATION
     Route: 042
     Dates: start: 20120926, end: 20121121
  3. ORAMORPH [Suspect]
     Indication: PRODUCT USED FOR UNKNOWN INDICATION
     Dosage: DAILY?AS NEEDED
     Route: 048
     Dates: start: 20120918
  4. SUNITINIB [Suspect]
     Indication: TRANSITIONAL CELL CARCINOMA
     Dates: start: 20120927, end: 20120929
  5. MORPHINE SULPHATE [Suspect]
     Indication: PRODUCT USED FOR UNKNOWN INDICATION
     Route: 048
     Dates: start: 20121001
  6. TAMSULOSIN [Concomitant]
     Dosage: DAILY
     Route: 048
     Dates: start: 20120401
  7. METOCLOPRAMIDE [Concomitant]
     Dosage: 30 - 60 MG
     Route: 048
     Dates: start: 20120921
  8. DULCOLAX [Concomitant]
     Route: 048
     Dates: start: 201206
  9. MOVICOL [Concomitant]
     Route: 048
     Dates: start: 20121010
  10. HYDROCORTISONE SODIUM SUCCINATE [Concomitant]
     Dosage: 2 - 4 MG A DAY
     Route: 048
     Dates: start: 20121011
  11. PREDNISOLONE [Concomitant]
     Dosage: DAILY
     Route: 048
     Dates: start: 201009
  12. PARACETAMOL [Concomitant]
     Dosage: DAILY
     Route: 048
     Dates: start: 201206

REACTIONS (4)
  - Deep vein thrombosis [Not Recovered/Not Resolved]
  - Vomiting [Recovered/Resolved]
  - Nausea [Not Recovered/Not Resolved]
  - Off label use [Unknown]
